FAERS Safety Report 16389988 (Version 1)
Quarter: 2019Q2

REPORT INFORMATION
  Report Type: Report from Study
  Country: US (occurrence: US)
  Receive Date: 20190604
  Receipt Date: 20190604
  Transmission Date: 20190711
  Serious: Yes (Hospitalization)
  Sender: FDA-Public Use
  Company Number: US-BAYER-2019-105963

PATIENT
  Age: 26 Year
  Sex: Male

DRUGS (2)
  1. CLARITIN [Suspect]
     Active Substance: LORATADINE
     Indication: RHINITIS ALLERGIC
     Dosage: UNK
     Dates: start: 2011, end: 2011
  2. CLARITIN-D NOS [Suspect]
     Active Substance: LORATADINE\PSEUDOEPHEDRINE SULFATE
     Indication: RHINITIS ALLERGIC
     Dosage: UNK
     Route: 048
     Dates: start: 2011, end: 2011

REACTIONS (3)
  - Depression [Recovered/Resolved]
  - Feeling jittery [Recovered/Resolved]
  - Heart rate increased [Recovered/Resolved]
